FAERS Safety Report 8734487 (Version 2)
Quarter: 2012Q4

REPORT INFORMATION
  Report Type: 
  Country: DE (occurrence: DE)
  Receive Date: 20120821
  Receipt Date: 20121018
  Transmission Date: 20130627
  Serious: Yes (Death)
  Sender: FDA-Public Use
  Company Number: DE-GLAXOSMITHKLINE-D0076771A

PATIENT
  Age: 58 None
  Sex: Female
  Weight: 70 kg

DRUGS (4)
  1. TYVERB [Suspect]
     Dosage: 1250MG Per day
     Route: 048
     Dates: start: 20110920, end: 2012
  2. XELODA [Suspect]
     Dosage: 3500MG per day
     Route: 065
     Dates: start: 201110
  3. VERGENTAN [Concomitant]
     Route: 048
  4. TRETINOIN CREAM [Concomitant]
     Route: 061

REACTIONS (6)
  - Hepatic failure [Unknown]
  - Blood bilirubin increased [Unknown]
  - Yellow skin [Unknown]
  - General physical health deterioration [Unknown]
  - Disease progression [Fatal]
  - Drug ineffective [Unknown]
